FAERS Safety Report 10059875 (Version 2)
Quarter: 2014Q2

REPORT INFORMATION
  Report Type: Spontaneous
  Country: CA (occurrence: CA)
  Receive Date: 20140404
  Receipt Date: 20140425
  Transmission Date: 20141212
  Serious: Yes (Other)
  Sender: FDA-Public Use
  Company Number: CA-GLAXOSMITHKLINE-A1062570A

PATIENT
  Sex: Female

DRUGS (2)
  1. TYKERB [Suspect]
     Indication: BREAST CANCER METASTATIC
     Dosage: 250MG FIVE TIMES PER DAY
     Route: 065
     Dates: end: 20140331
  2. XELODA [Suspect]
     Indication: BREAST CANCER
     Dosage: 6TAB PER DAY
     Route: 065

REACTIONS (10)
  - Diarrhoea haemorrhagic [Recovered/Resolved]
  - Diarrhoea [Recovered/Resolved]
  - Anorectal discomfort [Unknown]
  - Pain in extremity [Unknown]
  - Laceration [Unknown]
  - Laceration [Unknown]
  - Anal fissure [Unknown]
  - Proctalgia [Unknown]
  - Gait disturbance [Unknown]
  - Dry skin [Unknown]
